FAERS Safety Report 23851703 (Version 5)
Quarter: 2024Q4

REPORT INFORMATION
  Report Type: Spontaneous
  Country: US (occurrence: US)
  Receive Date: 20240514
  Receipt Date: 20241015
  Transmission Date: 20250115
  Serious: Yes (Other)
  Sender: GLAXOSMITHKLINE
  Company Number: US-GSKCCFUS-Case-02003387_AE-111219

PATIENT

DRUGS (1)
  1. NUCALA [Suspect]
     Active Substance: MEPOLIZUMAB
     Indication: Asthma
     Dosage: UNK
     Dates: start: 20240426

REACTIONS (6)
  - Atrial fibrillation [Unknown]
  - Dry eye [Unknown]
  - Dizziness [Unknown]
  - Blood pressure decreased [Unknown]
  - Productive cough [Unknown]
  - Product dose omission issue [Unknown]
